FAERS Safety Report 25817722 (Version 2)
Quarter: 2025Q4

REPORT INFORMATION
  Report Type: Spontaneous
  Country: GB (occurrence: GB)
  Receive Date: 20250918
  Receipt Date: 20251015
  Transmission Date: 20260118
  Serious: No
  Sender: PFIZER
  Company Number: GB-PFIZER INC-PV202500111658

PATIENT
  Age: 4 Year
  Sex: Male

DRUGS (1)
  1. GENOTROPIN [Suspect]
     Active Substance: SOMATROPIN
     Dosage: 0.5 MG, 1X/DAY
     Route: 058

REACTIONS (3)
  - Drug dose omission by device [Not Recovered/Not Resolved]
  - Device mechanical issue [Not Recovered/Not Resolved]
  - Device breakage [Not Recovered/Not Resolved]
